FAERS Safety Report 8872534 (Version 1)
Quarter: 2012Q4

REPORT INFORMATION
  Report Type: 
  Country: US (occurrence: US)
  Receive Date: 20121026
  Receipt Date: 20121026
  Transmission Date: 20130627
  Serious: No
  Sender: FDA-Public Use
  Company Number: US-AMGEN-USASP2012050915

PATIENT
  Age: 43 Year
  Sex: Female
  Weight: 97.05 kg

DRUGS (9)
  1. ENBREL [Suspect]
     Indication: PRODUCT USED FOR UNKNOWN INDICATION
     Dosage: 50 mg, qwk
     Route: 058
  2. ASTELIN                            /00085801/ [Concomitant]
     Dosage: 137 mug, UNK
  3. TAMOXIFEN [Concomitant]
     Dosage: 10 mg, UNK
  4. VERAMYST [Concomitant]
     Dosage: 27.5 mug, UNK
  5. HYDROCHLOROTH [Concomitant]
     Dosage: 12.5 mg, UNK
  6. METOPROL ZOK MEPHA [Concomitant]
     Dosage: 25 mg, UNK
  7. CALCIUM 600 [Concomitant]
     Dosage: UNK
  8. FLAXSEED OIL [Concomitant]
     Dosage: UNK
  9. VITAMIN D /00107901/ [Concomitant]
     Dosage: 400

REACTIONS (1)
  - Ear infection [Recovered/Resolved]
